FAERS Safety Report 5830395-3 (Version None)
Quarter: 2008Q3

REPORT INFORMATION
  Report Type: 
  Country: None (occurrence: None)
  Receive Date: 20080801
  Receipt Date: 20080722
  Transmission Date: 20090109
  Serious: Yes (Hospitalization)
  Sender: FDA-Public Use
  Company Number: US-SANOFI-SYNTHELABO-A03200802314

PATIENT
  Sex: Female

DRUGS (10)
  1. IRON [Concomitant]
     Indication: INSOMNIA
     Dosage: UNK
     Route: 065
  2. LAMICTAL [Concomitant]
     Indication: INSOMNIA
     Dosage: UNK
     Route: 048
  3. NEURONTIN [Concomitant]
     Indication: INSOMNIA
     Dosage: UNK
     Route: 048
  4. AMBIEN CR [Suspect]
     Indication: INSOMNIA
     Route: 048
     Dates: end: 20080101
  5. AMBIEN [Suspect]
     Indication: INSOMNIA
     Dosage: 10 MG HS AND ABOUT 4 HOURS LATER ANOTHER 20 MG TO GET BACK TO SLEEP
     Route: 048
     Dates: start: 20070101, end: 20080612
  6. AMBIEN [Suspect]
     Dosage: UNK
     Route: 048
     Dates: start: 20030101, end: 20060101
  7. AMBIEN [Suspect]
     Dosage: UNK
     Route: 048
     Dates: start: 20060101, end: 20070101
  8. HYDROXYZINE [Concomitant]
     Indication: DRUG USE FOR UNKNOWN INDICATION
     Dosage: UNK
     Route: 065
  9. TRAZODONE HCL [Concomitant]
     Indication: DRUG USE FOR UNKNOWN INDICATION
     Dosage: UNK
     Route: 065
  10. RISPERDAL [Concomitant]
     Indication: DRUG USE FOR UNKNOWN INDICATION
     Dosage: UNK
     Route: 065

REACTIONS (6)
  - DRUG ABUSE [None]
  - DRUG DEPENDENCE [None]
  - DRUG INEFFECTIVE [None]
  - DRUG TOLERANCE [None]
  - ROAD TRAFFIC ACCIDENT [None]
  - SOMNAMBULISM [None]
